FAERS Safety Report 25868577 (Version 3)
Quarter: 2025Q4

REPORT INFORMATION
  Report Type: Report from Study
  Country: US (occurrence: US)
  Receive Date: 20251001
  Receipt Date: 20251103
  Transmission Date: 20260117
  Serious: No
  Sender: ACADIA PHARMACEUTICALS
  Company Number: US-ACADIA PHARMACEUTICALS INC.-ACA-2025-PIM-010802

PATIENT
  Age: 67 Year
  Sex: Female

DRUGS (15)
  1. NUPLAZID [Suspect]
     Active Substance: PIMAVANSERIN TARTRATE
     Indication: Parkinson^s disease psychosis
     Dosage: 34 MILLIGRAM, QD
     Route: 048
     Dates: start: 20241101
  2. CARBIDOPA\LEVODOPA [Concomitant]
     Active Substance: CARBIDOPA\LEVODOPA
     Dosage: 2 DOSAGE FORM, QID
     Route: 048
  3. AMANTADINE HYDROCHLORIDE [Concomitant]
     Active Substance: AMANTADINE HYDROCHLORIDE
     Dosage: 1 DOSAGE FORM, BID
     Route: 048
  4. VITAMIN B COMPLEX [Concomitant]
     Active Substance: CYANOCOBALAMIN\DEXPANTHENOL\NIACINAMIDE\PYRIDOXINE HYDROCHLORIDE\RIBOFLAVIN 5^-PHOSPHATE SODIUM\THIA
     Dosage: 1 DOSAGE FORM, QD
  5. LYRICA [Concomitant]
     Active Substance: PREGABALIN
     Dosage: 1 DOSAGE FORM, BID
  6. DULOXETINE [Concomitant]
     Active Substance: DULOXETINE
     Dosage: UNK, BID
  7. ALENDRONATE [Concomitant]
     Active Substance: ALENDRONATE SODIUM
     Dosage: 1 DOSAGE FORM, WEEKLY
  8. MONTELUKAST [Concomitant]
     Active Substance: MONTELUKAST
     Dosage: 1 DOSAGE FORM, QD
  9. MELATONIN [Concomitant]
     Active Substance: MELATONIN
     Dosage: UNK, PRN
  10. TRAZODONE [Concomitant]
     Active Substance: TRAZODONE HYDROCHLORIDE
     Dosage: 1 DOSAGE FORM, QD, (AT BEDTIME)
  11. OXYCODONE [Concomitant]
     Active Substance: OXYCODONE
     Dosage: 10 MILLIGRAM, EVERY 6 HOUR
  12. POTASSIUM [Concomitant]
     Active Substance: POTASSIUM
     Dosage: UNK, BID
  13. CALCIUM [Concomitant]
     Active Substance: CALCIUM
     Dosage: UNK, BID
  14. VITAMIN E [Concomitant]
     Active Substance: .ALPHA.-TOCOPHEROL
     Dosage: UNK, BID
  15. VIT D [VITAMIN D NOS] [Concomitant]
     Dosage: UNK, BID

REACTIONS (3)
  - Incoherent [Recovered/Resolved]
  - Impaired driving ability [Recovered/Resolved]
  - Product distribution issue [Recovered/Resolved]

NARRATIVE: CASE EVENT DATE: 20241101
